FAERS Safety Report 18298558 (Version 2)
Quarter: 2020Q4

REPORT INFORMATION
  Report Type: Spontaneous
  Country: US (occurrence: US)
  Receive Date: 20200922
  Receipt Date: 20201002
  Transmission Date: 20210113
  Serious: Yes (Other)
  Sender: FDA-Public Use
  Company Number: US-SUNOVION-2020SUN002701

PATIENT
  Sex: Male
  Weight: 49.89 kg

DRUGS (3)
  1. QVAR [Concomitant]
     Active Substance: BECLOMETHASONE DIPROPIONATE
     Indication: ASTHMA
     Dosage: 40 ?G, BID
     Route: 055
     Dates: start: 20200611
  2. XOPENEX [Suspect]
     Active Substance: LEVALBUTEROL HYDROCHLORIDE
     Dosage: UNK, 3 TIMES A WEEK
     Route: 055
  3. XOPENEX [Suspect]
     Active Substance: LEVALBUTEROL HYDROCHLORIDE
     Indication: ASTHMA
     Dosage: 45 ?G, 4 PUFFS AS NEEDED, EVERY 4 HRS INHALATION
     Route: 055
     Dates: start: 20190922, end: 20200910

REACTIONS (6)
  - Choking [Unknown]
  - Off label use [Unknown]
  - Asthma [Unknown]
  - Foreign body aspiration [Unknown]
  - Device issue [Unknown]
  - Device malfunction [Unknown]
